FAERS Safety Report 13947584 (Version 1)
Quarter: 2017Q3

REPORT INFORMATION
  Report Type: Spontaneous
  Country: BR (occurrence: BR)
  Receive Date: 20170908
  Receipt Date: 20170908
  Transmission Date: 20171128
  Serious: Yes (Other)
  Sender: FDA-Public Use
  Company Number: BR-ROCHE-1985861

PATIENT
  Age: 40 Year
  Sex: Female

DRUGS (5)
  1. AVASTIN [Suspect]
     Active Substance: BEVACIZUMAB
     Indication: CERVIX CARCINOMA
     Route: 065
  2. XARELTO [Suspect]
     Active Substance: RIVAROXABAN
     Indication: ANTICOAGULANT THERAPY
     Route: 065
  3. CISPLATIN. [Suspect]
     Active Substance: CISPLATIN
     Indication: CERVIX CARCINOMA
     Route: 065
     Dates: start: 201506, end: 201610
  4. GABAPENTIN. [Suspect]
     Active Substance: GABAPENTIN
     Indication: NEUROPATHY PERIPHERAL
     Route: 065
  5. PACLITAXEL. [Suspect]
     Active Substance: PACLITAXEL
     Indication: CERVIX CARCINOMA
     Route: 065
     Dates: end: 201610

REACTIONS (10)
  - Neuropathy peripheral [Unknown]
  - Gamma-glutamyltransferase increased [Unknown]
  - Pulmonary embolism [Unknown]
  - Jaundice [Unknown]
  - Dyspnoea [Unknown]
  - Performance status decreased [Unknown]
  - Bilirubin conjugated increased [Unknown]
  - Choluria [Unknown]
  - Blood bilirubin increased [Unknown]
  - Deficiency of bile secretion [Unknown]
